FAERS Safety Report 4936490-5 (Version None)
Quarter: 2006Q1

REPORT INFORMATION
  Report Type: 
  Country: None (occurrence: None)
  Receive Date: 20060307
  Receipt Date: 20060227
  Transmission Date: 20060701
  Serious: Yes (Hospitalization)
  Sender: FDA-Public Use
  Company Number: US-MERCK-0603USA00236

PATIENT
  Sex: Male

DRUGS (2)
  1. VIOXX [Suspect]
     Route: 048
     Dates: start: 20010101, end: 20031101
  2. BEXTRA [Concomitant]
     Route: 065
     Dates: start: 20030901, end: 20040701

REACTIONS (1)
  - MYOCARDIAL INFARCTION [None]
